FAERS Safety Report 8555976-8 (Version None)
Quarter: 2012Q3

REPORT INFORMATION
  Report Type: 
  Country: None (occurrence: None)
  Receive Date: 20120801
  Receipt Date: 20101220
  Transmission Date: 20120928
  Serious: Yes (Hospitalization, Other)
  Sender: FDA-Public Use
  Company Number: US-BAYER-201027504NA

PATIENT
  Age: 29 Year
  Sex: Female
  Weight: 76 kg

DRUGS (7)
  1. YAZ [Suspect]
     Indication: ORAL CONTRACEPTION
     Route: 048
     Dates: start: 20080101, end: 20090301
  2. LOESTRIN FE 1/20 [Concomitant]
  3. YAZ [Suspect]
     Indication: ACNE
  4. MINOCYCLINE HCL [Concomitant]
  5. YAZ [Suspect]
     Indication: PREMENSTRUAL SYNDROME
  6. COLESTID [Concomitant]
  7. DIFFERIN [Concomitant]

REACTIONS (15)
  - NAUSEA [None]
  - ABDOMINAL DISCOMFORT [None]
  - GALLBLADDER CHOLESTEROLOSIS [None]
  - DYSPEPSIA [None]
  - VOMITING [None]
  - INCISION SITE PAIN [None]
  - INSOMNIA [None]
  - ABDOMINAL PAIN UPPER [None]
  - WEIGHT DECREASED [None]
  - ASTHENIA [None]
  - DIARRHOEA [None]
  - CHOLECYSTITIS CHRONIC [None]
  - ABDOMINAL TENDERNESS [None]
  - ABDOMINAL PAIN [None]
  - FLATULENCE [None]
